FAERS Safety Report 9204984 (Version 1)
Quarter: 2013Q2

REPORT INFORMATION
  Report Type: Spontaneous
  Country: US (occurrence: None)
  Receive Date: 20130401
  Receipt Date: 20130401
  Transmission Date: 20140414
  Serious: Yes (Other)
  Sender: FDA-Public Use
  Company Number: None

PATIENT
  Sex: Male
  Weight: 61.24 kg

DRUGS (2)
  1. PAROXETINE [Suspect]
     Indication: ANXIETY
     Dosage: 40MG 1 1/2 TIMES AT BED PO
     Route: 048
     Dates: start: 20080114, end: 20130310
  2. PAROXETINE [Suspect]
     Indication: DEPRESSION
     Dosage: 40MG 1 1/2 TIMES AT BED PO
     Route: 048
     Dates: start: 20080114, end: 20130310

REACTIONS (8)
  - Insomnia [None]
  - Muscle twitching [None]
  - Decreased appetite [None]
  - Irritability [None]
  - Hyperhidrosis [None]
  - Nausea [None]
  - Drug withdrawal syndrome [None]
  - Influenza like illness [None]
